FAERS Safety Report 4332033-8 (Version None)
Quarter: 2004Q1

REPORT INFORMATION
  Report Type: 
  Country: None (occurrence: None)
  Receive Date: 20040330
  Receipt Date: 20040319
  Transmission Date: 20041129
  Serious: Yes (Hospitalization)
  Sender: FDA-Public Use
  Company Number: WAES 0403USA01736

PATIENT
  Age: 53 Year
  Sex: Female
  Weight: 57.1532 kg

DRUGS (7)
  1. EMEND [Suspect]
     Indication: CHEMOTHERAPY
     Dosage: 125 MG/1X/PO
     Route: 048
     Dates: start: 20040106, end: 20040106
  2. EMEND [Suspect]
     Indication: PROPHYLAXIS
     Dosage: 125 MG/1X/PO
     Route: 048
     Dates: start: 20040106, end: 20040106
  3. DEXAMETHASONE [Suspect]
     Indication: PROPHYLAXIS OF NAUSEA AND VOMITING
     Dosage: 12 MG/1X/PO; SEE IMAGE
     Route: 048
     Dates: start: 20040106, end: 20040106
  4. DEXAMETHASONE [Suspect]
     Indication: PROPHYLAXIS OF NAUSEA AND VOMITING
     Dosage: 12 MG/1X/PO; SEE IMAGE
     Route: 048
     Dates: start: 20040107, end: 20040107
  5. [THERAPY UNSPECIFIED] UNK [Suspect]
     Indication: PROPHYLAXIS OF NAUSEA AND VOMITING
     Dosage: 0.25 MG/1X/IV
     Route: 042
     Dates: start: 20040106, end: 20040106
  6. ADRIAMYCIN PFS [Concomitant]
  7. CYTOXAN [Concomitant]

REACTIONS (9)
  - ATRIOVENTRICULAR BLOCK FIRST DEGREE [None]
  - BLOOD GLUCOSE INCREASED [None]
  - CONVULSION [None]
  - ELECTROENCEPHALOGRAM ABNORMAL [None]
  - HAEMOGLOBIN DECREASED [None]
  - LOSS OF CONSCIOUSNESS [None]
  - NAUSEA [None]
  - SINUS DISORDER [None]
  - VOMITING [None]
